FAERS Safety Report 5359076-X (Version None)
Quarter: 2007Q2

REPORT INFORMATION
  Report Type: 
  Country: None (occurrence: None)
  Receive Date: 20070615
  Receipt Date: 20070605
  Transmission Date: 20071010
  Serious: Yes (Disabling, Other)
  Sender: FDA-Public Use
  Company Number: US-ROCHE-473697

PATIENT
  Age: 20 Year
  Sex: Female
  Weight: 47.2 kg

DRUGS (2)
  1. ACCUTANE [Suspect]
     Indication: ACNE
     Route: 048
     Dates: start: 20030401
  2. ORTHO TRI-CYCLEN [Concomitant]

REACTIONS (8)
  - ANXIETY [None]
  - CROHN'S DISEASE [None]
  - DEPRESSION [None]
  - HAEMORRHAGE [None]
  - INFLAMMATORY BOWEL DISEASE [None]
  - INSOMNIA [None]
  - INTESTINAL STENOSIS [None]
  - SUICIDAL IDEATION [None]
